FAERS Safety Report 6659084-2 (Version None)
Quarter: 2010Q1

REPORT INFORMATION
  Report Type: 
  Country: None (occurrence: None)
  Receive Date: 20100330
  Receipt Date: 20100318
  Transmission Date: 20100710
  Serious: Yes (Hospitalization)
  Sender: FDA-Public Use
  Company Number: PHHY2010FR01140

PATIENT
  Sex: Female
  Weight: 81.3 kg

DRUGS (4)
  1. MYCOPHENOLIC ACID [Suspect]
     Indication: RENAL TRANSPLANT
     Dosage: 1440 MG DAILY
     Dates: start: 20080303
  2. MYCOPHENOLIC ACID [Suspect]
     Indication: IMMUNOSUPPRESSION
  3. PROGRAF [Concomitant]
     Dosage: 12 MG DAILY
     Dates: start: 20081112
  4. CORTANCYL [Concomitant]
     Dosage: 60 MG DAILY
     Dates: start: 20080304

REACTIONS (7)
  - CATHETER PLACEMENT [None]
  - CATHETER REMOVAL [None]
  - NEPHROSTOMY TUBE PLACEMENT [None]
  - PYELOCALIECTASIS [None]
  - RENAL IMPAIRMENT [None]
  - URINARY ANASTOMOTIC LEAK [None]
  - VESICOURETERAL REFLUX SURGERY [None]
